FAERS Safety Report 25299491 (Version 1)
Quarter: 2025Q2

REPORT INFORMATION
  Report Type: Spontaneous
  Country: RO (occurrence: RO)
  Receive Date: 20250512
  Receipt Date: 20250512
  Transmission Date: 20250717
  Serious: Yes (Death, Hospitalization)
  Sender: ALEXION PHARMACEUTICALS
  Company Number: RO-AstraZeneca-CH-00866584A

PATIENT
  Age: 85 Year
  Weight: 55 kg

DRUGS (1)
  1. ACALABRUTINIB [Suspect]
     Active Substance: ACALABRUTINIB
     Indication: Chronic lymphocytic leukaemia
     Dosage: 200 MILLIGRAM, QD

REACTIONS (3)
  - Paraesthesia [Unknown]
  - Haemorrhagic stroke [Recovered/Resolved with Sequelae]
  - Death [Fatal]
